FAERS Safety Report 10884842 (Version 4)
Quarter: 2016Q3

REPORT INFORMATION
  Report Type: Report from Study
  Country: JP (occurrence: JP)
  Receive Date: 20150304
  Receipt Date: 20160802
  Transmission Date: 20161109
  Serious: Yes (Hospitalization)
  Sender: FDA-Public Use
  Company Number: JP-OTSUKA-JP-2015-11155

PATIENT
  Age: 47 Year
  Sex: Female
  Weight: 60 kg

DRUGS (15)
  1. TOLVAPTAN [Suspect]
     Active Substance: TOLVAPTAN
     Indication: CONGENITAL CYSTIC KIDNEY DISEASE
     Dosage: 45 MG, IN THE MORNING
     Route: 048
     Dates: start: 20150217, end: 20150222
  2. TOLVAPTAN [Suspect]
     Active Substance: TOLVAPTAN
     Dosage: 30 MG, IN THE EVENING
     Route: 048
     Dates: start: 20150304, end: 20151001
  3. TOLVAPTAN [Suspect]
     Active Substance: TOLVAPTAN
     Dosage: 60 MG, IN THE MORNING
     Route: 048
     Dates: start: 20150724
  4. AMLODIN [Suspect]
     Active Substance: AMLODIPINE BESYLATE
     Indication: PRODUCT USED FOR UNKNOWN INDICATION
     Dosage: 2.5 MG, DAILY DOSE
     Route: 048
     Dates: start: 20150216
  5. CALBLOCK [Concomitant]
     Active Substance: AZELNIDIPINE
     Indication: PRODUCT USED FOR UNKNOWN INDICATION
     Dosage: 4 MG, DAILY DOSE
     Route: 048
     Dates: end: 20150215
  6. TOLVAPTAN [Suspect]
     Active Substance: TOLVAPTAN
     Dosage: 90 MG, IN THE MORNING
     Route: 048
     Dates: start: 20150401, end: 20150723
  7. SENNOSIDE A+B CALCIUM [Concomitant]
     Active Substance: SENNOSIDES A AND B
     Indication: PRODUCT USED FOR UNKNOWN INDICATION
     Dosage: 12 MG, DAILY DOSE
     Route: 048
     Dates: start: 20150220
  8. ESOMEPRAZOLE MAGNESIUM. [Concomitant]
     Active Substance: ESOMEPRAZOLE MAGNESIUM
     Indication: PRODUCT USED FOR UNKNOWN INDICATION
     Dosage: 20 MG, DAILY DOSE
     Route: 048
     Dates: start: 20150220
  9. TOLVAPTAN [Suspect]
     Active Substance: TOLVAPTAN
     Dosage: 15 MG, IN THE EVENING
     Route: 048
     Dates: start: 20150217, end: 20150303
  10. TOLVAPTAN [Suspect]
     Active Substance: TOLVAPTAN
     Dosage: 45 MG, IN THE MORNING
     Route: 048
     Dates: start: 20150224, end: 20150303
  11. TOLVAPTAN [Suspect]
     Active Substance: TOLVAPTAN
     Dosage: 30 MG, IN THE DAYTIME
     Route: 048
     Dates: start: 20151002, end: 20151203
  12. FERROMIA [Concomitant]
     Active Substance: FERROUS CITRATE
     Indication: PRODUCT USED FOR UNKNOWN INDICATION
     Dosage: 100 MG, DAILY DOSE
     Route: 048
     Dates: start: 20150220
  13. TOLVAPTAN [Suspect]
     Active Substance: TOLVAPTAN
     Dosage: 60 MG, IN THE MORNING
     Route: 048
     Dates: start: 20150304, end: 20150331
  14. TOLVAPTAN [Suspect]
     Active Substance: TOLVAPTAN
     Dosage: 30 MG, IN THE EVENING
     Route: 048
     Dates: start: 20151204
  15. OLMETEC [Suspect]
     Active Substance: OLMESARTAN MEDOXOMIL
     Indication: PRODUCT USED FOR UNKNOWN INDICATION
     Dosage: 20 MG, DAILY DOSE
     Route: 048
     Dates: start: 20150216, end: 20150225

REACTIONS (6)
  - Nausea [Unknown]
  - Anaemia [Recovered/Resolved]
  - Chest pain [Recovered/Resolved]
  - Anaemia [Recovered/Resolved]
  - Constipation [Unknown]
  - Decreased appetite [Recovered/Resolved]

NARRATIVE: CASE EVENT DATE: 20150218
